FAERS Safety Report 6310740-5 (Version None)
Quarter: 2009Q3

REPORT INFORMATION
  Report Type: 
  Country: None (occurrence: None)
  Receive Date: 20090812
  Receipt Date: 20090630
  Transmission Date: 20100115
  Serious: No
  Sender: FDA-Public Use
  Company Number: WAES 0907USA00058

PATIENT
  Age: 59 Year
  Sex: Female

DRUGS (5)
  1. ZOLINZA [Suspect]
     Indication: MYCOSIS FUNGOIDES
     Dosage: 400 MG/DAILY/PO
     Route: 048
     Dates: start: 20070601, end: 20090401
  2. FLEXERIL [Concomitant]
  3. NEXIUM [Concomitant]
  4. TAGAMET [Concomitant]
  5. TYLENOL (CAPLET) [Concomitant]

REACTIONS (4)
  - ALOPECIA [None]
  - NAUSEA [None]
  - OEDEMA PERIPHERAL [None]
  - VOMITING [None]
